FAERS Safety Report 5007741-6 (Version None)
Quarter: 2006Q2

REPORT INFORMATION
  Report Type: 
  Country: None (occurrence: None)
  Receive Date: 20060522
  Receipt Date: 20060517
  Transmission Date: 20061013
  Serious: Yes (Life-Threatening, Hospitalization, Disabling, Other)
  Sender: FDA-Public Use
  Company Number: PHHO2006GB07935

PATIENT
  Age: 64 Year
  Sex: Male
  Weight: 85 kg

DRUGS (7)
  1. DEXAMETHASONE [Concomitant]
     Dosage: 40 MG, UNK
     Route: 048
     Dates: start: 20051007, end: 20051216
  2. ALLOPURINOL [Concomitant]
     Dosage: 100 MG, UNK
     Route: 048
     Dates: start: 20051007, end: 20051216
  3. ADRIAMYCIN PFS [Concomitant]
  4. ZOLEDRONATE [Suspect]
     Indication: MULTIPLE MYELOMA
     Dosage: 4 MG,  EVERY 3-4 WEEKS
     Route: 042
     Dates: start: 20051007, end: 20051216
  5. CYCLOPHOSPHAMIDE [Suspect]
     Dosage: 500 MG, UNK
     Route: 048
     Dates: start: 20051007, end: 20051216
  6. VINCRISTINE [Concomitant]
     Dosage: 1.6 UNK, UNK
     Route: 042
     Dates: start: 20051007, end: 20051216
  7. DOXORUBICIN HCL [Concomitant]
     Dosage: 72 MG, UNK
     Route: 042
     Dates: start: 20051001, end: 20051216

REACTIONS (2)
  - CATHETER SEPSIS [None]
  - RENAL FAILURE [None]
